FAERS Safety Report 17031096 (Version 1)
Quarter: 2019Q4

REPORT INFORMATION
  Report Type: Report from Study
  Country: FR (occurrence: FR)
  Receive Date: 20191114
  Receipt Date: 20191114
  Transmission Date: 20200122
  Serious: Yes (Hospitalization)
  Sender: FDA-Public Use
  Company Number: FR-KYOWAKIRIN-2019BKK017547

PATIENT

DRUGS (1)
  1. POTELIGEO [Suspect]
     Active Substance: MOGAMULIZUMAB-KPKC
     Indication: CUTANEOUS T-CELL LYMPHOMA
     Dosage: 1 MG/KG D1 AND D15, CYCLE OF 28 DAYS
     Route: 042
     Dates: start: 20181112, end: 20190722

REACTIONS (3)
  - Hypersensitivity [Not Recovered/Not Resolved]
  - Acute kidney injury [Not Recovered/Not Resolved]
  - Glomerulonephritis [Not Recovered/Not Resolved]

NARRATIVE: CASE EVENT DATE: 2019
